FAERS Safety Report 19633366 (Version 3)
Quarter: 2021Q4

REPORT INFORMATION
  Report Type: Report from Study
  Country: US (occurrence: US)
  Receive Date: 20210730
  Receipt Date: 20211114
  Transmission Date: 20220303
  Serious: No
  Sender: FDA-Public Use
  Company Number: NVSC2021US164619

PATIENT
  Age: 55 Year
  Sex: Male

DRUGS (1)
  1. KESIMPTA [Suspect]
     Active Substance: OFATUMUMAB
     Indication: Multiple sclerosis
     Dosage: 20 MG
     Route: 058
     Dates: start: 20210717

REACTIONS (6)
  - Gait disturbance [Unknown]
  - Gait inability [Unknown]
  - Feeling abnormal [Unknown]
  - Pain [Recovered/Resolved with Sequelae]
  - Dysstasia [Unknown]
  - Nightmare [Unknown]

NARRATIVE: CASE EVENT DATE: 20210717
